FAERS Safety Report 11326849 (Version 2)
Quarter: 2015Q3

REPORT INFORMATION
  Report Type: Spontaneous
  Country: US (occurrence: US)
  Receive Date: 20150731
  Receipt Date: 20150814
  Transmission Date: 20151125
  Serious: Yes (Hospitalization)
  Sender: FDA-Public Use
  Company Number: US-SA-2015SA111457

PATIENT
  Age: 64 Year
  Sex: Female

DRUGS (1)
  1. ARAVA [Suspect]
     Active Substance: LEFLUNOMIDE
     Indication: RHEUMATOID ARTHRITIS
     Route: 065

REACTIONS (6)
  - Colitis [Unknown]
  - Anaemia megaloblastic [Unknown]
  - Blood count abnormal [Unknown]
  - Diarrhoea [Unknown]
  - Bone marrow disorder [Unknown]
  - Polyneuropathy [Unknown]
